FAERS Safety Report 12355816 (Version 1)
Quarter: 2016Q2

REPORT INFORMATION
  Report Type: Spontaneous
  Country: US (occurrence: US)
  Receive Date: 20160511
  Receipt Date: 20160511
  Transmission Date: 20160815
  Serious: Yes (Other)
  Sender: FDA-Public Use
  Company Number: US-BAUSCH-BL-2016-011061

PATIENT
  Age: 83 Year
  Sex: Female

DRUGS (5)
  1. BRIMONIDINE [Suspect]
     Active Substance: BRIMONIDINE TARTRATE
     Indication: EXFOLIATION GLAUCOMA
     Route: 065
  2. DORZOLAMIDE AND TIMOLOL [Suspect]
     Active Substance: DORZOLAMIDE\TIMOLOL
     Indication: EXFOLIATION GLAUCOMA
     Route: 065
  3. NEVANAC [Suspect]
     Active Substance: NEPAFENAC
     Indication: PRODUCT USED FOR UNKNOWN INDICATION
     Route: 065
  4. LOTEMAX [Suspect]
     Active Substance: LOTEPREDNOL ETABONATE
     Indication: PRODUCT USED FOR UNKNOWN INDICATION
     Route: 065
  5. BIMATOPROST. [Suspect]
     Active Substance: BIMATOPROST
     Indication: EXFOLIATION GLAUCOMA
     Route: 065

REACTIONS (5)
  - Visual acuity tests abnormal [Recovering/Resolving]
  - Punctate keratitis [Recovered/Resolved]
  - Corneal oedema [Recovered/Resolved]
  - Anterior chamber inflammation [Recovering/Resolving]
  - Intraocular pressure increased [Recovering/Resolving]
